FAERS Safety Report 10041739 (Version 3)
Quarter: 2014Q2

REPORT INFORMATION
  Report Type: Spontaneous
  Country: US (occurrence: None)
  Receive Date: 20140325
  Receipt Date: 20140527
  Transmission Date: 20141212
  Serious: Yes (Hospitalization)
  Sender: FDA-Public Use
  Company Number: 2014-US-003303

PATIENT
  Age: 45 Year
  Sex: Female

DRUGS (2)
  1. XYREM [Suspect]
     Indication: NARCOLEPSY
     Route: 048
     Dates: start: 200605, end: 2006
  2. XYREM [Suspect]
     Indication: CATAPLEXY
     Route: 048
     Dates: start: 200605, end: 2006

REACTIONS (5)
  - Hypertension [None]
  - Confusional state [None]
  - Delusion [None]
  - Joint injury [None]
  - Investigation [None]
